FAERS Safety Report 6772377-3 (Version None)
Quarter: 2010Q2

REPORT INFORMATION
  Report Type: 
  Country: None (occurrence: None)
  Receive Date: 20100616
  Receipt Date: 20091120
  Transmission Date: 20101027
  Serious: No
  Sender: FDA-Public Use
  Company Number: US-ASTRAZENECA-2009SE27888

PATIENT
  Age: 34 Year
  Sex: Female
  Weight: 64 kg

DRUGS (3)
  1. PULMICORT RESPULES [Suspect]
     Indication: ASTHMA
     Route: 055
     Dates: start: 20091119
  2. PULMICORT FLEXHALER [Concomitant]
     Indication: ASTHMA
  3. LEVOXYL [Concomitant]
     Indication: THYROID DISORDER

REACTIONS (1)
  - HYPOAESTHESIA FACIAL [None]
